FAERS Safety Report 21964917 (Version 1)
Quarter: 2023Q1

REPORT INFORMATION
  Report Type: Spontaneous
  Country: JP (occurrence: JP)
  Receive Date: 20230207
  Receipt Date: 20230207
  Transmission Date: 20230417
  Serious: Yes (Other)
  Sender: FDA-Public Use
  Company Number: JP-DSJP-DSJ-2022-131867

PATIENT
  Age: 53 Year
  Sex: Female

DRUGS (14)
  1. DENOSUMAB [Suspect]
     Active Substance: DENOSUMAB
     Indication: Metastases to bone
     Dosage: 120 MILLIGRAM, Q4WK
     Route: 058
     Dates: start: 20200203, end: 20220608
  2. AVASTIN [Suspect]
     Active Substance: BEVACIZUMAB
     Indication: Product used for unknown indication
     Dosage: 580 MILLIGRAM
     Route: 065
     Dates: start: 20220518, end: 2022
  3. AVASTIN [Suspect]
     Active Substance: BEVACIZUMAB
     Dosage: 500 MILLIGRAM
     Route: 065
     Dates: start: 20220608
  4. IBRANCE [Concomitant]
     Active Substance: PALBOCICLIB
     Dosage: UNK
     Route: 065
     Dates: end: 2022
  5. PACLITAXEL [Concomitant]
     Active Substance: PACLITAXEL
     Dosage: UNK UNK, ONCE EVERY 1 WK
     Route: 065
     Dates: start: 20220518
  6. CALCIUM CARBONATE\CHOLECALCIFEROL\MAGNESIUM CARBONATE [Concomitant]
     Active Substance: CALCIUM CARBONATE\CHOLECALCIFEROL\MAGNESIUM CARBONATE
     Indication: Hypocalcaemia
     Dosage: 2 DOSAGE FORM, QD
     Route: 065
     Dates: start: 20210307
  7. ANASTROZOLE [Concomitant]
     Active Substance: ANASTROZOLE
     Indication: Hormone receptor positive breast cancer
     Dosage: 1 MILLIGRAM, QD
     Route: 065
     Dates: start: 20200203
  8. METHYLCOBALAMIN [Concomitant]
     Active Substance: METHYLCOBALAMIN
     Indication: Neuropathy peripheral
     Dosage: 1500 MILLIGRAM, TID
     Route: 065
  9. SODIUM GUALENATE MONOHYDRATE [Concomitant]
     Active Substance: SODIUM GUALENATE MONOHYDRATE
     Indication: Dental disorder prophylaxis
     Dosage: 1 DOSAGE FORM, QD
     Route: 065
  10. HERBALS [Concomitant]
     Active Substance: HERBALS
     Indication: Neuropathy peripheral
     Dosage: 3 DOSAGE FORM, TID
     Route: 065
  11. CINAL [Concomitant]
     Indication: Pigmentation disorder
     Dosage: 6 DOSAGE FORM, TID
     Route: 065
     Dates: start: 20210321
  12. TOCOPHEROL ACETATE TOWA [Concomitant]
     Dosage: 3 DOSAGE FORM, TID
     Route: 065
     Dates: start: 20210321
  13. HERBALS [Concomitant]
     Active Substance: HERBALS
     Indication: Decreased immune responsiveness
     Dosage: 2 DOSAGE FORM, BID
     Route: 065
     Dates: start: 20210618
  14. HERBALS [Concomitant]
     Active Substance: HERBALS
     Indication: Prophylaxis
     Dosage: UNK

REACTIONS (4)
  - Osteonecrosis of jaw [Not Recovered/Not Resolved]
  - Metastases to liver [Unknown]
  - Metastases to lung [Unknown]
  - Weight decreased [Unknown]

NARRATIVE: CASE EVENT DATE: 20210407
